FAERS Safety Report 11743795 (Version 16)
Quarter: 2018Q4

REPORT INFORMATION
  Report Type: Spontaneous
  Country: US (occurrence: US)
  Receive Date: 20151116
  Receipt Date: 20181016
  Transmission Date: 20190204
  Serious: No
  Sender: FDA-Public Use
  Company Number: PHEH2015US023739

PATIENT
  Sex: Female
  Weight: 49.89 kg

DRUGS (4)
  1. ZOFRAN [Suspect]
     Active Substance: ONDANSETRON HYDROCHLORIDE
     Indication: MORNING SICKNESS
     Route: 042
  2. ONDANSETRON [Suspect]
     Active Substance: ONDANSETRON
     Indication: MORNING SICKNESS
     Route: 065
  3. ZOFRAN [Suspect]
     Active Substance: ONDANSETRON HYDROCHLORIDE
     Indication: MORNING SICKNESS
     Dosage: 04 MG, UNK
     Route: 048
  4. ONDANSETRON. [Suspect]
     Active Substance: ONDANSETRON
     Indication: MORNING SICKNESS
     Dosage: 4 MG
     Route: 065
     Dates: start: 20110928, end: 201110

REACTIONS (9)
  - Fear [Unknown]
  - Product use in unapproved indication [Unknown]
  - Pain [Unknown]
  - Emotional distress [Unknown]
  - Injury [Unknown]
  - Anxiety [Unknown]
  - Maternal exposure during pregnancy [Unknown]
  - Dizziness [Unknown]
  - Rash [Unknown]
